FAERS Safety Report 5616671-8 (Version None)
Quarter: 2008Q1

REPORT INFORMATION
  Report Type: 
  Country: None (occurrence: None)
  Receive Date: 20080207
  Receipt Date: 20080128
  Transmission Date: 20080703
  Serious: Yes (Hospitalization, Other)
  Sender: FDA-Public Use
  Company Number: PHBS2008NL01539

PATIENT
  Age: 51 Year
  Sex: Male
  Weight: 125 kg

DRUGS (4)
  1. CYCLOSPORINE [Suspect]
     Indication: LIVER TRANSPLANT
     Route: 065
  2. PREDNISONE TAB [Concomitant]
     Indication: LIVER TRANSPLANT
  3. LAMIVUDINE [Concomitant]
  4. INSULIN [Concomitant]
     Route: 058

REACTIONS (25)
  - ALANINE AMINOTRANSFERASE INCREASED [None]
  - BIOPSY KIDNEY ABNORMAL [None]
  - BLOOD ALBUMIN DECREASED [None]
  - BLOOD CREATININE INCREASED [None]
  - BLOOD IMMUNOGLOBULIN G DECREASED [None]
  - BLOOD IMMUNOGLOBULIN M INCREASED [None]
  - BLOOD PRESSURE INCREASED [None]
  - COMPLEMENT FACTOR C3 DECREASED [None]
  - COMPLEMENT FACTOR C4 DECREASED [None]
  - CRYOGLOBULINAEMIA [None]
  - DYSPNOEA [None]
  - GLOMERULONEPHRITIS MEMBRANOPROLIFERATIVE [None]
  - HEPATITIS C [None]
  - HEPATITIS C RNA [None]
  - INFLAMMATION [None]
  - KIDNEY FIBROSIS [None]
  - NEPHROPATHY TOXIC [None]
  - NEPHROTIC SYNDROME [None]
  - PITTING OEDEMA [None]
  - PROTEINURIA [None]
  - RALES [None]
  - RENAL IMPAIRMENT [None]
  - RENAL TUBULAR ATROPHY [None]
  - RESPIRATORY RATE INCREASED [None]
  - RHEUMATOID FACTOR INCREASED [None]
